FAERS Safety Report 4355834-9 (Version None)
Quarter: 2004Q2

REPORT INFORMATION
  Report Type: 
  Country: None (occurrence: None)
  Receive Date: 20040511
  Receipt Date: 20040511
  Transmission Date: 20050107
  Serious: Yes (Other)
  Sender: FDA-Public Use
  Company Number: None

PATIENT
  Age: 37 Year
  Sex: Male

DRUGS (1)
  1. PPD [Suspect]

REACTIONS (5)
  - ERYTHEMA [None]
  - HEADACHE [None]
  - PHARYNGOLARYNGEAL PAIN [None]
  - PRURITUS [None]
  - SWELLING [None]
